FAERS Safety Report 9394261 (Version 1)
Quarter: 2013Q3

REPORT INFORMATION
  Report Type: Spontaneous
  Country: US (occurrence: US)
  Receive Date: 20130711
  Receipt Date: 20130711
  Transmission Date: 20140515
  Serious: No
  Sender: FDA-Public Use
  Company Number: US-009507513-1307USA005429

PATIENT
  Age: 15 Year
  Sex: Female
  Weight: 86.17 kg

DRUGS (2)
  1. IMPLANON [Suspect]
     Indication: CONTRACEPTION
     Dosage: UNK
     Route: 059
     Dates: start: 20130304
  2. CELEXA [Concomitant]

REACTIONS (2)
  - Device breakage [Unknown]
  - Product quality issue [Unknown]
